FAERS Safety Report 9532891 (Version 2)
Quarter: 2013Q3

REPORT INFORMATION
  Report Type: Spontaneous
  Country: RO (occurrence: RO)
  Receive Date: 20130918
  Receipt Date: 20130919
  Transmission Date: 20140515
  Serious: Yes (Other)
  Sender: FDA-Public Use
  Company Number: RO-ROCHE-1276654

PATIENT
  Age: 50 Year
  Sex: Female
  Weight: 47 kg

DRUGS (3)
  1. CAPECITABINE [Suspect]
     Indication: COLON CANCER
     Route: 048
     Dates: start: 20070831, end: 200712
  2. OXALIPLATIN [Suspect]
     Indication: COLON CANCER
     Route: 065
     Dates: start: 20070831, end: 200712
  3. BEVACIZUMAB [Suspect]
     Indication: COLON CANCER
     Route: 065
     Dates: start: 201206

REACTIONS (4)
  - Metastases to lung [Recovered/Resolved]
  - Febrile neutropenia [Recovering/Resolving]
  - Leukopenia [Recovering/Resolving]
  - Neuropathy peripheral [Recovering/Resolving]
